FAERS Safety Report 4365086-1 (Version None)
Quarter: 2004Q2

REPORT INFORMATION
  Report Type: 
  Country: None (occurrence: None)
  Receive Date: 20040521
  Receipt Date: 20040504
  Transmission Date: 20050107
  Serious: Yes (Hospitalization)
  Sender: FDA-Public Use
  Company Number: DEWYE73870MAY04

PATIENT
  Age: 58 Year
  Sex: Female

DRUGS (3)
  1. LORAZEPAM [Suspect]
     Dosage: 30 TABLETS (OVERDOSE AMOUNT 60 MG),ORAL
     Route: 048
     Dates: start: 20040503, end: 20040503
  2. CHLORDIAZEPOXIDE [Suspect]
     Dosage: 50 MG, ORAL
     Route: 048
     Dates: start: 20040503, end: 20040503
  3. SERAX [Suspect]
     Dosage: 8 TABLETS (OVERDOSE AMOUNT 80MG), ORAL
     Route: 048
     Dates: start: 20040503, end: 20040503

REACTIONS (2)
  - FATIGUE [None]
  - INTENTIONAL OVERDOSE [None]
